FAERS Safety Report 4460146-9 (Version None)
Quarter: 2004Q3

REPORT INFORMATION
  Report Type: 
  Country: None (occurrence: None)
  Receive Date: 20040928
  Receipt Date: 20040105
  Transmission Date: 20050211
  Serious: No
  Sender: FDA-Public Use
  Company Number: US-GLAXOSMITHKLINE-A0491330A

PATIENT
  Age: 85 Year
  Sex: Female

DRUGS (5)
  1. SEREVENT [Suspect]
     Dosage: 1PUFF TWICE PER DAY
     Route: 055
     Dates: start: 20031224, end: 20040101
  2. AZMACORT [Concomitant]
  3. ATROVENT [Concomitant]
  4. VIOXX [Concomitant]
  5. ZANTAC [Concomitant]

REACTIONS (2)
  - GLOSSODYNIA [None]
  - PHARYNGOLARYNGEAL PAIN [None]
